FAERS Safety Report 11719627 (Version 1)
Quarter: 2015Q4

REPORT INFORMATION
  Report Type: Spontaneous
  Country: US (occurrence: None)
  Receive Date: 20151109
  Receipt Date: 20151109
  Transmission Date: 20160304
  Serious: No
  Sender: FDA-Public Use
  Company Number: None

PATIENT
  Age: 66 Year
  Sex: Male
  Weight: 78.93 kg

DRUGS (4)
  1. COUMADIN [Concomitant]
     Active Substance: WARFARIN SODIUM
  2. ARGININE [Concomitant]
     Active Substance: ARGININE
  3. CRESTOR [Suspect]
     Active Substance: ROSUVASTATIN CALCIUM
     Indication: BLOOD CHOLESTEROL INCREASED
     Dosage: AT BEDTIME; TAKEN BY MOUTH
     Dates: start: 20150630, end: 20151104
  4. TAURINE [Concomitant]
     Active Substance: TAURINE

REACTIONS (5)
  - Rash [None]
  - Pain [None]
  - Dyspepsia [None]
  - Tooth infection [None]
  - Muscle spasms [None]

NARRATIVE: CASE EVENT DATE: 20151108
